FAERS Safety Report 4656355-6 (Version None)
Quarter: 2005Q2

REPORT INFORMATION
  Report Type: 
  Country: None (occurrence: None)
  Receive Date: 20050502
  Receipt Date: 20050420
  Transmission Date: 20051028
  Serious: Yes (Death)
  Sender: FDA-Public Use
  Company Number: 200510338BBE

PATIENT
  Age: 50 Year
  Sex: Male

DRUGS (3)
  1. PLASBUMIN-20 [Suspect]
     Dosage: INTRAVENOUS DRIP
     Route: 042
     Dates: start: 20050309
  2. VITAMIN K [Concomitant]
  3. OMEPRAZOLE [Concomitant]

REACTIONS (3)
  - CARDIAC ARREST [None]
  - PHARMACEUTICAL PRODUCT COMPLAINT [None]
  - SUDDEN DEATH [None]
